FAERS Safety Report 7810162-1 (Version None)
Quarter: 2011Q4

REPORT INFORMATION
  Report Type: 
  Country: None (occurrence: None)
  Receive Date: 20111006
  Receipt Date: 20110922
  Transmission Date: 20120403
  Serious: Yes (Death)
  Sender: FDA-Public Use
  Company Number: TPA2011A06058

PATIENT
  Age: 83 Year
  Sex: Male

DRUGS (1)
  1. ACTOS [Suspect]
     Dosage: 30 MG
     Dates: start: 20020101, end: 20110801

REACTIONS (1)
  - BLADDER NEOPLASM [None]
